FAERS Safety Report 24763746 (Version 1)
Quarter: 2024Q4

REPORT INFORMATION
  Report Type: Spontaneous
  Country: US (occurrence: US)
  Receive Date: 20241223
  Receipt Date: 20241223
  Transmission Date: 20250115
  Serious: Yes (Other)
  Sender: EPIC PHARM
  Company Number: US-EPICPHARMA-US-2024EPCLIT01571

PATIENT
  Age: 70 Year
  Sex: Male

DRUGS (3)
  1. TOBRAMYCIN [Suspect]
     Active Substance: TOBRAMYCIN\TOBRAMYCIN SULFATE
     Indication: Citrobacter infection
     Dosage: 3 BOTTLES (APPROXIMATELY 3.6 GRAMS)
     Route: 014
  2. VANCOMYCIN [Concomitant]
     Active Substance: VANCOMYCIN
     Route: 014
  3. CEFEPIME [Concomitant]
     Active Substance: CEFEPIME HYDROCHLORIDE
     Indication: Product used for unknown indication
     Route: 042

REACTIONS (3)
  - Acute kidney injury [Recovered/Resolved]
  - Nephropathy toxic [Recovered/Resolved]
  - Drug level increased [Recovered/Resolved]
